FAERS Safety Report 5449856-4 (Version None)
Quarter: 2007Q3

REPORT INFORMATION
  Report Type: 
  Country: None (occurrence: None)
  Receive Date: 20070907
  Receipt Date: 20070907
  Transmission Date: 20080115
  Serious: Yes (Life-Threatening)
  Sender: FDA-Public Use
  Company Number: None

PATIENT
  Age: 69 Year
  Sex: Male
  Weight: 81.6475 kg

DRUGS (1)
  1. ERBITUX [Suspect]
     Indication: NEOPLASM MALIGNANT
     Dosage: DAILY IV DRIP
     Route: 041
     Dates: start: 20070701, end: 20070906

REACTIONS (7)
  - DYSPHAGIA [None]
  - ILL-DEFINED DISORDER [None]
  - INFUSION RELATED REACTION [None]
  - MEMORY IMPAIRMENT [None]
  - NO THERAPEUTIC RESPONSE [None]
  - OESOPHAGEAL DISORDER [None]
  - ORAL INTAKE REDUCED [None]
